FAERS Safety Report 8818821 (Version 1)
Quarter: 2012Q4

REPORT INFORMATION
  Report Type: Spontaneous
  Country: US (occurrence: None)
  Receive Date: 20121004
  Receipt Date: 20121004
  Transmission Date: 20130627
  Serious: No
  Sender: FDA-Public Use
  Company Number: None

PATIENT
  Age: 69 Year
  Sex: Male
  Weight: 111.9 kg

DRUGS (11)
  1. TORISEL [Suspect]
     Indication: PROSTATE CANCER
     Route: 042
     Dates: start: 20120604, end: 20120827
  2. LORATADONE [Concomitant]
  3. DIPHENYDRAMINE [Concomitant]
  4. AMITRIPHYLINE [Concomitant]
  5. ENOXAPARIM [Concomitant]
  6. FUROSEMIDE [Concomitant]
  7. NOPELIN [Concomitant]
  8. HYDROCODONE [Concomitant]
  9. CA# [Concomitant]
  10. FLOMAX [Concomitant]
  11. METROPOLOL TARTRATE [Concomitant]

REACTIONS (3)
  - Pyrexia [None]
  - Pain [None]
  - Dysuria [None]
